FAERS Safety Report 7637557-3 (Version None)
Quarter: 2011Q3

REPORT INFORMATION
  Report Type: 
  Country: None (occurrence: None)
  Receive Date: 20110726
  Receipt Date: 20110720
  Transmission Date: 20111222
  Serious: No
  Sender: FDA-Public Use
  Company Number: US-PFIZER INC-2011165680

PATIENT
  Sex: Male

DRUGS (8)
  1. ZETIA [Concomitant]
     Dosage: UNK
  2. PLAVIX [Suspect]
     Indication: VASCULAR GRAFT
     Dosage: 75 MG, 1X/DAY
     Route: 048
     Dates: start: 20000101
  3. NIFEDIPINE [Suspect]
     Dosage: UNK
  4. TYLENOL-500 [Concomitant]
     Dosage: UNK
  5. TEMAZEPAM [Concomitant]
     Dosage: UNK
  6. POTASSIUM [Concomitant]
     Dosage: UNK
  7. FUROSEMIDE [Concomitant]
     Dosage: UNK
  8. DIPHENHYDRAMINE [Concomitant]
     Dosage: UNK

REACTIONS (2)
  - MEDICATION RESIDUE [None]
  - PRURITUS [None]
